FAERS Safety Report 9435463 (Version 2)
Quarter: 2013Q3

REPORT INFORMATION
  Report Type: Report from Study
  Country: CN (occurrence: CN)
  Receive Date: 20130801
  Receipt Date: 20130812
  Transmission Date: 20140515
  Serious: Yes (Hospitalization)
  Sender: FDA-Public Use
  Company Number: CN-ROCHE-1255547

PATIENT
  Age: 27 Year
  Sex: Female
  Weight: 49 kg

DRUGS (5)
  1. CELLCEPT [Suspect]
     Indication: LUPUS NEPHRITIS
     Route: 048
     Dates: start: 2010
  2. CELLCEPT [Suspect]
     Route: 048
  3. METHYLPREDNISOLONE [Concomitant]
     Indication: LUPUS NEPHRITIS
     Route: 042
     Dates: start: 2010
  4. PREDNISONE ACETATE [Concomitant]
     Indication: LUPUS NEPHRITIS
     Route: 048
     Dates: end: 20130722
  5. PREDNISONE ACETATE [Concomitant]
     Route: 048
     Dates: start: 20130722

REACTIONS (3)
  - Vasculitis [Recovered/Resolved]
  - Iron deficiency anaemia [Recovering/Resolving]
  - Skin exfoliation [Not Recovered/Not Resolved]
